FAERS Safety Report 8557077-1 (Version None)
Quarter: 2012Q3

REPORT INFORMATION
  Report Type: 
  Country: None (occurrence: None)
  Receive Date: 20120801
  Receipt Date: 20120801
  Transmission Date: 20120928
  Serious: Yes (Other)
  Sender: FDA-Public Use
  Company Number: IL-BAYER-2012-077070

PATIENT
  Age: 75 Year
  Sex: Male

DRUGS (5)
  1. LEVITRA [Concomitant]
     Indication: ERECTILE DYSFUNCTION
     Dosage: 15 MG, UNK
  2. DESLORATADINE [Concomitant]
     Indication: HYPERSENSITIVITY
  3. LIPITOR [Concomitant]
  4. LEVITRA [Suspect]
     Indication: ERECTILE DYSFUNCTION
     Dosage: UNK
     Dates: start: 20120701, end: 20120701
  5. CARTIA XT [Concomitant]

REACTIONS (2)
  - EYE HAEMORRHAGE [None]
  - DRUG INEFFECTIVE [None]
